FAERS Safety Report 9156304 (Version 4)
Quarter: 2013Q2

REPORT INFORMATION
  Report Type: Spontaneous
  Country: JP (occurrence: JP)
  Receive Date: 20130312
  Receipt Date: 20130416
  Transmission Date: 20140414
  Serious: Yes (Hospitalization, Other)
  Sender: FDA-Public Use
  Company Number: JP-AMGEN-JPNSP2013016695

PATIENT
  Age: 80 Year
  Sex: Female
  Weight: 30 kg

DRUGS (17)
  1. ENBREL [Suspect]
     Indication: RHEUMATOID ARTHRITIS
     Dosage: 25 MG, WEEKLY
     Route: 058
     Dates: start: 201110
  2. ENBREL [Suspect]
     Dosage: 50 MG, WEEKLY
     Route: 058
  3. AMIODARONE [Concomitant]
     Indication: MYOCARDIAL INFARCTION
     Dosage: 50 MG, 1X/DAY
     Route: 048
  4. OLMETEC [Concomitant]
     Indication: HYPERTENSION
     Dosage: 10 MG, 1X/DAY
     Route: 048
  5. PREDNISOLONE [Concomitant]
     Indication: RHEUMATIC DISORDER
     Dosage: 30 MG, UNK
     Dates: start: 2000
  6. PREDNISOLONE [Concomitant]
     Indication: RHEUMATOID VASCULITIS
     Dosage: 10 MG, 1X/DAY
  7. AZULFIDINE EN [Concomitant]
     Indication: RHEUMATIC DISORDER
     Dosage: 500 MG, 1X/DAY
     Route: 048
  8. LASIX                              /00032601/ [Concomitant]
     Indication: HYPERTENSION
     Dosage: 20 MG, 1X/DAY
     Route: 048
  9. LANSOPRAZOLE [Concomitant]
     Indication: GASTRIC ULCER
     Dosage: 30 MG, 1X/DAY
     Route: 048
  10. MELOXICAM [Concomitant]
     Indication: RHEUMATIC DISORDER
     Dosage: 10 MG, 1X/DAY
     Route: 048
  11. ASPARA-CA [Concomitant]
     Indication: PROPHYLAXIS
     Dosage: 600 MG, 1X/DAY
     Route: 048
  12. PLATIBIT [Concomitant]
     Indication: PROPHYLAXIS
     Dosage: 0.5 UG, 1X/DAY
     Route: 048
  13. LIVALO [Concomitant]
     Indication: MYOCARDIAL INFARCTION
     Dosage: 1 MG, 1X/DAY
     Route: 048
  14. NIKORANMART [Concomitant]
     Indication: MYOCARDIAL INFARCTION
     Dosage: 15 MG, 3X/DAY
     Route: 048
  15. VOGLIBOSE [Concomitant]
     Indication: DIABETES MELLITUS
     Dosage: 0.9 MG, 3X/DAY
     Route: 048
  16. STARSIS [Concomitant]
     Indication: DIABETES MELLITUS
     Dosage: 270 MG, 3X/DAY
     Route: 048
  17. BONALON [Concomitant]
     Indication: PROPHYLAXIS
     Dosage: 35 MG, 1X/DAY
     Route: 048

REACTIONS (2)
  - Cataract [Not Recovered/Not Resolved]
  - Femur fracture [Recovered/Resolved]
